FAERS Safety Report 10578315 (Version 1)
Quarter: 2014Q4

REPORT INFORMATION
  Report Type: Spontaneous
  Country: US (occurrence: None)
  Receive Date: 20141111
  Receipt Date: 20141111
  Transmission Date: 20150529
  Serious: Yes (Disabling, Other)
  Sender: FDA-Public Use
  Company Number: None

PATIENT
  Age: 83 Year
  Sex: Female
  Weight: 61.24 kg

DRUGS (1)
  1. LEVOFLOXACIN 500 MG AUROMEDICS [Suspect]
     Active Substance: LEVOFLOXACIN
     Indication: SINUSITIS
     Dosage: 1 TABLET ONCE DAILY
     Route: 048
     Dates: start: 20141108, end: 20141108

REACTIONS (3)
  - Peripheral swelling [None]
  - Vascular pain [None]
  - Erythema [None]

NARRATIVE: CASE EVENT DATE: 20141108
